FAERS Safety Report 6479870-1 (Version None)
Quarter: 2009Q4

REPORT INFORMATION
  Report Type: 
  Country: None (occurrence: None)
  Receive Date: 20091208
  Receipt Date: 20091130
  Transmission Date: 20100525
  Serious: Yes (Other)
  Sender: FDA-Public Use
  Company Number: ES-ROCHE-671868

PATIENT
  Age: 84 Year
  Sex: Female

DRUGS (10)
  1. TAMIFLU [Suspect]
     Indication: DRUG USE FOR UNKNOWN INDICATION
     Route: 048
     Dates: start: 20091108, end: 20091109
  2. DENUBIL [Suspect]
     Dosage: DOSE: FIXED DOSE
     Route: 048
     Dates: start: 20091105
  3. ENALAPRIL [Concomitant]
  4. FUROSEMIDE [Concomitant]
  5. OMEPRAZOLE [Concomitant]
  6. PLAVIX [Concomitant]
  7. PROFER [Concomitant]
  8. AVIDART [Concomitant]
  9. SANDOSTATIN [Concomitant]
     Route: 042
  10. LORMETAZEPAM [Concomitant]

REACTIONS (2)
  - DISORIENTATION [None]
  - HALLUCINATION [None]
